FAERS Safety Report 14733311 (Version 1)
Quarter: 2018Q2

REPORT INFORMATION
  Report Type: Spontaneous
  Country: US (occurrence: US)
  Receive Date: 20180409
  Receipt Date: 20180409
  Transmission Date: 20180711
  Serious: Yes (Other)
  Sender: FDA-Public Use
  Company Number: US-ABBVIE-18S-163-2313178-00

PATIENT
  Age: 30 Year
  Sex: Female

DRUGS (3)
  1. LEVOTHYROXINE SODIUM. [Suspect]
     Active Substance: LEVOTHYROXINE SODIUM
     Indication: AUTOIMMUNE THYROIDITIS
     Route: 065
     Dates: end: 20180110
  2. SYNTHROID [Suspect]
     Active Substance: LEVOTHYROXINE SODIUM
     Indication: PRODUCT USED FOR UNKNOWN INDICATION
     Route: 048
     Dates: end: 201801
  3. LEVOTHYROXINE SODIUM. [Suspect]
     Active Substance: LEVOTHYROXINE SODIUM
     Route: 065
     Dates: start: 20180110, end: 20180313

REACTIONS (6)
  - Asthma [Unknown]
  - Asthma [Unknown]
  - Dyspnoea [Unknown]
  - Allergy to plants [Unknown]
  - Pneumothorax [Unknown]
  - Wheezing [Unknown]

NARRATIVE: CASE EVENT DATE: 20180110
